FAERS Safety Report 8518031-9 (Version None)
Quarter: 2012Q3

REPORT INFORMATION
  Report Type: 
  Country: None (occurrence: None)
  Receive Date: 20120718
  Receipt Date: 20110824
  Transmission Date: 20120928
  Serious: Yes (Other)
  Sender: FDA-Public Use
  Company Number: US-BRISTOL-MYERS SQUIBB COMPANY-15968977

PATIENT
  Age: 81 Year
  Sex: Male
  Weight: 82 kg

DRUGS (3)
  1. WARFARIN SODIUM [Suspect]
     Dates: start: 20081210
  2. PLAVIX [Suspect]
  3. ASPIRIN [Concomitant]

REACTIONS (2)
  - HAEMORRHAGE [None]
  - CONTUSION [None]
